FAERS Safety Report 23193774 (Version 1)
Quarter: 2023Q4

REPORT INFORMATION
  Report Type: Spontaneous
  Country: DK (occurrence: DK)
  Receive Date: 20231116
  Receipt Date: 20231116
  Transmission Date: 20240110
  Serious: Yes (Hospitalization)
  Sender: FDA-Public Use
  Company Number: None

PATIENT
  Age: 42 Year
  Sex: Male
  Weight: 97 kg

DRUGS (2)
  1. CONCERTA [Suspect]
     Active Substance: METHYLPHENIDATE HYDROCHLORIDE
     Indication: Attention deficit hyperactivity disorder
     Dosage: DOSAGE: UNKNOWN, BUT PRESCRIBED ONCE A DAY. DOSE INCREASED ON UNKNOWN DATE. STRENGTH: 18 MG
     Route: 048
     Dates: start: 20210101
  2. CONCERTA [Suspect]
     Active Substance: METHYLPHENIDATE HYDROCHLORIDE
     Dosage: DOSAGE: UNKNOWN, BUT PRESCRIBED ONCE A DAY. DOSE INCREASED ON UNKNOWN DATE. STRENGTH: 36 MG
     Route: 048
     Dates: end: 20220111

REACTIONS (3)
  - Thrombosis [Not Recovered/Not Resolved]
  - Cerebral thrombosis [Not Recovered/Not Resolved]
  - Dizziness [Recovered/Resolved]

NARRATIVE: CASE EVENT DATE: 20210201
